FAERS Safety Report 8516535-6 (Version None)
Quarter: 2012Q3

REPORT INFORMATION
  Report Type: 
  Country: None (occurrence: None)
  Receive Date: 20120711
  Receipt Date: 20120711
  Transmission Date: 20120928
  Serious: Yes (Other)
  Sender: FDA-Public Use
  Company Number: None

PATIENT
  Sex: Female

DRUGS (3)
  1. LISINOPRIL [Suspect]
     Indication: HYPERTENSION
     Dosage: 5 MG ONCE A DAY PO
     Route: 048
     Dates: start: 20120625, end: 20120709
  2. INSULIN [Concomitant]
  3. MULTI-VITAMIN [Concomitant]

REACTIONS (3)
  - RASH [None]
  - PRURITUS [None]
  - COUGH [None]
